FAERS Safety Report 4892356-0 (Version None)
Quarter: 2006Q1

REPORT INFORMATION
  Report Type: 
  Country: None (occurrence: None)
  Receive Date: 20060126
  Receipt Date: 20060120
  Transmission Date: 20060701
  Serious: Yes (Other)
  Sender: FDA-Public Use
  Company Number: GB-GLAXOSMITHKLINE-B0407371A

PATIENT
  Age: 1 Year
  Sex: Female

DRUGS (2)
  1. AMOXIL [Suspect]
     Indication: DRUG USE FOR UNKNOWN INDICATION
     Dosage: 125MG TWICE PER DAY
     Route: 048
     Dates: start: 20060118, end: 20060119
  2. NO CONCURRENT MEDICATION [Concomitant]

REACTIONS (4)
  - AGGRESSION [None]
  - PERSONALITY CHANGE [None]
  - SCREAMING [None]
  - SLEEP DISORDER [None]
